FAERS Safety Report 25393786 (Version 1)
Quarter: 2025Q2

REPORT INFORMATION
  Report Type: Spontaneous
  Country: ES (occurrence: ES)
  Receive Date: 20250604
  Receipt Date: 20250604
  Transmission Date: 20250717
  Serious: Yes (Life-Threatening, Hospitalization)
  Sender: ROCHE
  Company Number: None

PATIENT
  Age: 56 Year
  Sex: Male

DRUGS (2)
  1. ALECENSA [Suspect]
     Active Substance: ALECTINIB HYDROCHLORIDE
     Indication: Lung adenocarcinoma stage IV
     Route: 048
     Dates: start: 2020, end: 2025
  2. ELIQUIS 2,5 MG COMPRIMIDOS RECUBIERTOS CON PELICULA [Concomitant]

REACTIONS (3)
  - Hyperbilirubinaemia [Recovering/Resolving]
  - Renal failure [Recovering/Resolving]
  - Hepatitis cholestatic [Recovering/Resolving]

NARRATIVE: CASE EVENT DATE: 20250214
